FAERS Safety Report 5306255-3 (Version None)
Quarter: 2007Q1

REPORT INFORMATION
  Report Type: 
  Country: None (occurrence: None)
  Receive Date: 20070201
  Receipt Date: 20061204
  Transmission Date: 20070707
  Serious: No
  Sender: FDA-Public Use
  Company Number: 2006PV026339

PATIENT
  Age: 45 Year
  Sex: Male

DRUGS (3)
  1. BYETTA [Suspect]
     Indication: DIABETES MELLITUS NON-INSULIN-DEPENDENT
     Dosage: 5 MCG BID SC
     Route: 058
     Dates: start: 20061001
  2. METFORMIN HCL [Concomitant]
  3. GLYBURIDE [Concomitant]

REACTIONS (5)
  - ABDOMINAL PAIN UPPER [None]
  - ANOREXIA [None]
  - CONSTIPATION [None]
  - FLUID INTAKE REDUCED [None]
  - HAEMORRHOIDAL HAEMORRHAGE [None]
